FAERS Safety Report 16614431 (Version 1)
Quarter: 2019Q3

REPORT INFORMATION
  Report Type: Spontaneous
  Country: CN (occurrence: CN)
  Receive Date: 20190723
  Receipt Date: 20190723
  Transmission Date: 20191004
  Serious: Yes (Other)
  Sender: FDA-Public Use
  Company Number: CN-PFIZER INC-2019309265

PATIENT
  Age: 26 Year
  Sex: Female
  Weight: 61 kg

DRUGS (3)
  1. HEMABATE [Suspect]
     Active Substance: CARBOPROST TROMETHAMINE
     Indication: UTERINE CONTRACTIONS DURING PREGNANCY
     Dosage: 250 UG, 1X/DAY
     Dates: start: 20190622, end: 20190622
  2. PU JI [Concomitant]
     Indication: PREMATURE RUPTURE OF MEMBRANES
     Dosage: 50 ML, 1X/DAY
     Dates: start: 20190622, end: 20190622
  3. HE FENG [Concomitant]
     Indication: PREMATURE RUPTURE OF MEMBRANES
     Dosage: 20 UNK, 1X/DAY
     Dates: start: 20190622, end: 20190624

REACTIONS (4)
  - Erythema [Recovering/Resolving]
  - Swelling face [Recovering/Resolving]
  - Dyspnoea [Recovering/Resolving]
  - Orbital oedema [Recovering/Resolving]

NARRATIVE: CASE EVENT DATE: 20190622
